FAERS Safety Report 9493516 (Version 2)
Quarter: 2013Q4

REPORT INFORMATION
  Report Type: Spontaneous
  Country: US (occurrence: US)
  Receive Date: 20130902
  Receipt Date: 20131018
  Transmission Date: 20140711
  Serious: No
  Sender: FDA-Public Use
  Company Number: US-PFIZER INC-2013249285

PATIENT
  Age: 87 Year
  Sex: Female

DRUGS (2)
  1. NEOSPORIN [Suspect]
     Dosage: UNK
  2. FLONASE [Suspect]
     Dosage: UNK

REACTIONS (3)
  - Drug hypersensitivity [Unknown]
  - Rash [Unknown]
  - Blister [Unknown]
